FAERS Safety Report 25707138 (Version 1)
Quarter: 2025Q3

REPORT INFORMATION
  Report Type: Spontaneous
  Country: US (occurrence: US)
  Receive Date: 20250820
  Receipt Date: 20250820
  Transmission Date: 20251020
  Serious: No
  Sender: ABBVIE
  Company Number: US-ABBVIE-6416272

PATIENT

DRUGS (4)
  1. VRAYLAR [Suspect]
     Active Substance: CARIPRAZINE
     Indication: Bipolar I disorder
     Route: 048
  2. VRAYLAR [Suspect]
     Active Substance: CARIPRAZINE
     Indication: Bipolar I disorder
     Route: 048
  3. VRAYLAR [Suspect]
     Active Substance: CARIPRAZINE
     Indication: Bipolar I disorder
     Route: 048
  4. DOXYCYCLINE [Concomitant]
     Active Substance: DOXYCYCLINE
     Indication: Product used for unknown indication
     Dates: start: 2025

REACTIONS (2)
  - Sedation [Recovered/Resolved]
  - Somnolence [Unknown]
